FAERS Safety Report 5146424-9 (Version None)
Quarter: 2006Q4

REPORT INFORMATION
  Report Type: 
  Country: None (occurrence: None)
  Receive Date: 20061102
  Receipt Date: 20061019
  Transmission Date: 20070319
  Serious: Yes (Other)
  Sender: FDA-Public Use
  Company Number: 2006129093

PATIENT
  Sex: Male

DRUGS (1)
  1. NEURONTIN [Suspect]
     Indication: BACK PAIN
     Dosage: 1600 MG (1600 MG, 1 IN 1 D)

REACTIONS (5)
  - AMNESIA [None]
  - BACK PAIN [None]
  - DISORIENTATION [None]
  - DRUG EFFECT DECREASED [None]
  - VISUAL DISTURBANCE [None]
